FAERS Safety Report 20840737 (Version 1)
Quarter: 2022Q2

REPORT INFORMATION
  Report Type: Spontaneous
  Country: US (occurrence: None)
  Receive Date: 20220517
  Receipt Date: 20220517
  Transmission Date: 20220720
  Serious: No
  Sender: FDA-Public Use
  Company Number: None

PATIENT
  Age: 50 Year
  Sex: Male
  Weight: 57.6 kg

DRUGS (8)
  1. STELARA [Suspect]
     Active Substance: USTEKINUMAB
     Indication: Crohn^s disease
     Dosage: OTHER FREQUENCY : Q 4 WEEKS;?
     Route: 058
     Dates: start: 20220407
  2. AMITRIPTYLINE [Concomitant]
     Active Substance: AMITRIPTYLINE
  3. GABAPENTIN [Concomitant]
     Active Substance: GABAPENTIN
  4. NICOTINE POLACRILEX [Concomitant]
     Active Substance: NICOTINE
  5. PREDNISONE [Concomitant]
     Active Substance: PREDNISONE
  6. ONDANSETRON [Concomitant]
     Active Substance: ONDANSETRON
  7. VITAMIN B12 [Concomitant]
     Active Substance: CYANOCOBALAMIN
  8. ENTECAVIR [Concomitant]
     Active Substance: ENTECAVIR

REACTIONS (1)
  - Tremor [None]

NARRATIVE: CASE EVENT DATE: 20220417
